FAERS Safety Report 7773293-0 (Version None)
Quarter: 2011Q3

REPORT INFORMATION
  Report Type: 
  Country: None (occurrence: None)
  Receive Date: 20110922
  Receipt Date: 20110913
  Transmission Date: 20111222
  Serious: Yes (Other)
  Sender: FDA-Public Use
  Company Number: BR-ASTRAZENECA-2011SE55480

PATIENT
  Age: 76 Year
  Sex: Male
  Weight: 57 kg

DRUGS (11)
  1. CEBRALAT [Concomitant]
     Route: 048
     Dates: start: 20081101
  2. VASTAREL [Concomitant]
     Route: 048
     Dates: start: 20081101
  3. LASIX [Concomitant]
     Route: 048
     Dates: start: 20081101
  4. PLAVIX [Concomitant]
     Route: 048
     Dates: start: 20081101
  5. CRESTOR [Suspect]
     Indication: HYPERCHOLESTEROLAEMIA
     Route: 048
     Dates: start: 20081101
  6. NORIPURUM FOLICUM [Concomitant]
     Route: 048
     Dates: start: 20081101
  7. CRESTOR [Suspect]
     Route: 048
  8. SPIROCTAN [Concomitant]
     Route: 048
     Dates: start: 20081101
  9. DIGOXIN [Concomitant]
     Route: 048
     Dates: start: 20081101
  10. OMEPRAZOLE [Suspect]
     Indication: PROPHYLAXIS AGAINST GASTROINTESTINAL ULCER
     Route: 048
     Dates: start: 20081101
  11. ICTUS [Concomitant]
     Route: 048
     Dates: start: 20081101

REACTIONS (1)
  - CAROTID ARTERY OCCLUSION [None]
